FAERS Safety Report 10029785 (Version 1)
Quarter: 2014Q1

REPORT INFORMATION
  Report Type: Spontaneous
  Country: US (occurrence: None)
  Receive Date: 20140319
  Receipt Date: 20140319
  Transmission Date: 20141002
  Serious: Yes (Other)
  Sender: FDA-Public Use
  Company Number: IMP_07521_2014

PATIENT
  Age: 46 Year
  Sex: Female
  Weight: 56.7 kg

DRUGS (1)
  1. LORATADINE/PSEUDOEPHEDRINE SULFATE [Suspect]
     Indication: HYPERSENSITIVITY
     Dosage: SINGLE DOSE
     Route: 048
     Dates: start: 20140306, end: 20140306

REACTIONS (4)
  - Feeling jittery [None]
  - Palpitations [None]
  - Dyspnoea [None]
  - Blood pressure increased [None]
